FAERS Safety Report 8887111 (Version 3)
Quarter: 2013Q1

REPORT INFORMATION
  Report Type: Spontaneous
  Country: JP (occurrence: JP)
  Receive Date: 20121105
  Receipt Date: 20130104
  Transmission Date: 20140127
  Serious: Yes (Hospitalization)
  Sender: FDA-Public Use
  Company Number: JP-ROCHE-1150146

PATIENT
  Age: 55 Year
  Sex: Male

DRUGS (9)
  1. PEGASYS [Suspect]
     Indication: CHRONIC HEPATITIS C
     Route: 058
     Dates: start: 20100724, end: 20111119
  2. COPEGUS [Suspect]
     Indication: CHRONIC HEPATITIS C
     Route: 048
     Dates: start: 20100724, end: 20111123
  3. BLOPRESS [Concomitant]
     Indication: HYPERTENSION
     Route: 048
     Dates: start: 201111
  4. ALLEGRA [Concomitant]
     Route: 048
     Dates: start: 201111
  5. ZYLORIC [Concomitant]
     Indication: HYPERURICAEMIA
     Route: 048
     Dates: start: 201111
  6. MAGLAX [Concomitant]
     Indication: CONSTIPATION
     Route: 048
     Dates: start: 201111
  7. HALCION [Concomitant]
     Indication: INSOMNIA
     Route: 048
     Dates: start: 201111
  8. BRUFEN [Concomitant]
     Indication: PYREXIA
     Dosage: SINGLE USE
     Route: 048
  9. MUCOSTA [Concomitant]
     Indication: PROPHYLAXIS
     Dosage: SINGLE USE
     Route: 048
     Dates: start: 201111

REACTIONS (1)
  - Neuromyelitis optica [Recovering/Resolving]
